FAERS Safety Report 6379636-7 (Version None)
Quarter: 2009Q3

REPORT INFORMATION
  Report Type: 
  Country: None (occurrence: None)
  Receive Date: 20090924
  Receipt Date: 20090924
  Transmission Date: 20100115
  Serious: Yes (Other)
  Sender: FDA-Public Use
  Company Number: None

PATIENT
  Sex: Female
  Weight: 66.6788 kg

DRUGS (4)
  1. TYKERB [Suspect]
     Indication: OESOPHAGEAL SQUAMOUS CELL CARCINOMA
     Dosage: 1500MG DAILY PO
     Route: 048
     Dates: start: 20071016, end: 20071127
  2. ACETAMINOPHEN [Suspect]
     Indication: RADIATION MUCOSITIS
     Dosage: 480MG DAILY PO
     Route: 048
     Dates: start: 20071105, end: 20071127
  3. SIMVASTATIN [Suspect]
  4. LORATADINE [Suspect]

REACTIONS (5)
  - ALANINE AMINOTRANSFERASE INCREASED [None]
  - ASPARTATE AMINOTRANSFERASE INCREASED [None]
  - DEHYDRATION [None]
  - HEPATIC FUNCTION ABNORMAL [None]
  - MUCOSAL INFLAMMATION [None]
